FAERS Safety Report 19954891 (Version 7)
Quarter: 2021Q4

REPORT INFORMATION
  Report Type: Report from Study
  Country: DE (occurrence: DE)
  Receive Date: 20211013
  Receipt Date: 20211206
  Transmission Date: 20220303
  Serious: Yes (Life-Threatening, Hospitalization)
  Sender: FDA-Public Use
  Company Number: DE-BAYER-2021A228858

PATIENT
  Age: 60 Year
  Sex: Female

DRUGS (7)
  1. COPANLISIB [Suspect]
     Active Substance: COPANLISIB
     Indication: Diffuse large B-cell lymphoma
     Dosage: 60 MG DAILY (PLANNED DAY 1 AND 8 OF EACH CYCLE, CUMULATIVE DOSE 120 MG)
     Route: 042
     Dates: start: 20210929
  2. COPANLISIB [Suspect]
     Active Substance: COPANLISIB
     Indication: Diffuse large B-cell lymphoma
     Dosage: UNK
     Dates: start: 20211006
  3. PREDNISONE [Suspect]
     Active Substance: PREDNISONE
     Indication: Diffuse large B-cell lymphoma
     Dosage: 100 MG DAILY (PLANNES DAY 2 - 6 OF EACH CYCLE)
     Route: 048
     Dates: start: 20210930, end: 20211004
  4. RITUXIMAB [Concomitant]
     Active Substance: RITUXIMAB
     Indication: Diffuse large B-cell lymphoma
     Dosage: 727 MG (PLANNED DAY 2 OF EACH CYCLE)
     Route: 042
     Dates: start: 20210930
  5. CYCLOPHOSPHAMIDE [Concomitant]
     Active Substance: CYCLOPHOSPHAMIDE
     Indication: Diffuse large B-cell lymphoma
     Dosage: 1455 MG  (PLANNED DAY 2 OF EACH CYCLE)
     Route: 042
     Dates: start: 20210930
  6. DOXORUBICIN [Concomitant]
     Active Substance: DOXORUBICIN
     Indication: Diffuse large B-cell lymphoma
     Dosage: 97 MG (PLANNED DAY 2 OF EACH CYCLE)
     Route: 042
     Dates: start: 20210930
  7. VINCRISTINE [Concomitant]
     Active Substance: VINCRISTINE
     Indication: Diffuse large B-cell lymphoma
     Dosage: 2 MG  (PLANNED DAY 2 OF EACH CYCLE)
     Route: 042
     Dates: start: 20210930

REACTIONS (3)
  - Diabetic hyperosmolar coma [Recovered/Resolved]
  - Urosepsis [Recovered/Resolved]
  - Mucosal infection [Recovered/Resolved]

NARRATIVE: CASE EVENT DATE: 20211011
